FAERS Safety Report 8090729-9 (Version None)
Quarter: 2012Q1

REPORT INFORMATION
  Report Type: 
  Country: None (occurrence: None)
  Receive Date: 20120131
  Receipt Date: 20120125
  Transmission Date: 20120608
  Serious: Yes (Hospitalization)
  Sender: FDA-Public Use
  Company Number: US-VERTEX PHARMACEUTICALS INC.-AE-2012-001351

PATIENT
  Sex: Female
  Weight: 68.1 kg

DRUGS (5)
  1. INCIVEK [Suspect]
     Indication: HEPATITIS C
     Dates: start: 20120103, end: 20120123
  2. EFFEXOR [Concomitant]
  3. RIBAVIRIN [Concomitant]
     Indication: HEPATITIS C
     Route: 048
     Dates: start: 20120103, end: 20120123
  4. PEGASYS [Concomitant]
     Indication: HEPATITIS C
     Route: 058
     Dates: start: 20120103, end: 20120123
  5. CLONAZEPAM [Concomitant]

REACTIONS (3)
  - DEPRESSION [None]
  - NAUSEA [None]
  - VOMITING [None]
